FAERS Safety Report 16290237 (Version 2)
Quarter: 2019Q2

REPORT INFORMATION
  Report Type: Spontaneous
  Country: FR (occurrence: FR)
  Receive Date: 20190509
  Receipt Date: 20190607
  Transmission Date: 20190711
  Serious: Yes (Life-Threatening)
  Sender: FDA-Public Use
  Company Number: FR-ACCORD-126649

PATIENT
  Age: 32 Year
  Sex: Female
  Weight: 61 kg

DRUGS (2)
  1. QUETIAPINE. [Suspect]
     Active Substance: QUETIAPINE
     Route: 048
     Dates: start: 20190220, end: 20190220
  2. VALIUM [Suspect]
     Active Substance: DIAZEPAM
     Dosage: SCORED TABLET, 10 MG
     Route: 048
     Dates: start: 20190220, end: 20190220

REACTIONS (9)
  - Cardiogenic shock [Recovered/Resolved]
  - Coma [Recovered/Resolved]
  - Defect conduction intraventricular [Recovered/Resolved]
  - Toxicity to various agents [Unknown]
  - Seizure [Recovered/Resolved]
  - Syncope [Recovered/Resolved]
  - Status epilepticus [Recovered/Resolved]
  - Mydriasis [Recovered/Resolved]
  - Ventricular arrhythmia [Recovered/Resolved]

NARRATIVE: CASE EVENT DATE: 20190220
